FAERS Safety Report 7446990-4 (Version None)
Quarter: 2011Q2

REPORT INFORMATION
  Report Type: 
  Country: None (occurrence: None)
  Receive Date: 20110429
  Receipt Date: 20110419
  Transmission Date: 20111010
  Serious: Yes (Other)
  Sender: FDA-Public Use
  Company Number: PHHY2011FR32846

PATIENT
  Age: 74 Year
  Sex: Male

DRUGS (1)
  1. EVEROLIMUS [Suspect]
     Dates: start: 20060801

REACTIONS (14)
  - PULMONARY FIBROSIS [None]
  - DYSPNOEA [None]
  - INFLAMMATION [None]
  - CHOLESTASIS [None]
  - CARDIAC MURMUR [None]
  - HAEMOGLOBIN DECREASED [None]
  - PYREXIA [None]
  - BREATH SOUNDS ABNORMAL [None]
  - ANAEMIA [None]
  - ALVEOLITIS ALLERGIC [None]
  - COUGH [None]
  - RALES [None]
  - HEPATIC ENZYME INCREASED [None]
  - INTERSTITIAL LUNG DISEASE [None]
